FAERS Safety Report 6335791-6 (Version None)
Quarter: 2009Q3

REPORT INFORMATION
  Report Type: 
  Country: None (occurrence: None)
  Receive Date: 20090828
  Receipt Date: 20090814
  Transmission Date: 20100115
  Serious: Yes (Death, Hospitalization)
  Sender: FDA-Public Use
  Company Number: 8048317

PATIENT
  Age: 70 Year
  Sex: Female

DRUGS (18)
  1. LEVOCETIRIZINE DIHYDROCHLORIDE [Suspect]
     Indication: RHINITIS ALLERGIC
     Dosage: 5 MG /D PO
     Route: 047
     Dates: start: 20081202, end: 20081216
  2. LEVOCETIRIZINE DIHYDROCHLORIDE [Suspect]
     Indication: RHINITIS ALLERGIC
     Dosage: 5 MG /D PO
     Route: 048
     Dates: start: 20081231, end: 20090114
  3. FLUARIX /00027001/ [Suspect]
     Indication: IMMUNISATION
     Dosage: IM
     Route: 030
     Dates: start: 20081007, end: 20081007
  4. DICLOFENAC POTASSIUM [Suspect]
     Indication: OSTEOARTHRITIS
     Dosage: 75 MG /D PO
     Route: 048
     Dates: start: 20070326, end: 20070401
  5. DICLOFENAC POTASSIUM [Suspect]
     Indication: OSTEOARTHRITIS
     Dosage: 75 MG /D PO
     Route: 048
     Dates: start: 20070908, end: 20071006
  6. DICLOFENAC POTASSIUM [Suspect]
     Indication: OSTEOARTHRITIS
     Dosage: 75 MG /D PO
     Route: 048
     Dates: start: 20071124, end: 20071222
  7. DICLOFENAC POTASSIUM [Suspect]
     Indication: OSTEOARTHRITIS
     Dosage: 75 MG /D PO
     Route: 048
     Dates: start: 20081225, end: 20081228
  8. DICLOFENAC POTASSIUM [Suspect]
     Dosage: 75 MG /D PO
     Route: 048
     Dates: start: 20081230, end: 20090102
  9. DICLOFENAC POTASSIUM [Suspect]
     Dosage: 75 MG /D PO
     Route: 048
     Dates: start: 20090106, end: 20090109
  10. DICLOFENAC SODIUM [Suspect]
     Indication: MYALGIA
     Dosage: 1000 MG /D PO
     Route: 048
     Dates: start: 20080507, end: 20080614
  11. DICLOFENAC SODIUM [Suspect]
     Indication: MYALGIA
     Dosage: 100 MG /D PO
     Route: 048
     Dates: start: 20080701, end: 20080708
  12. CLINDAMYCIN [Suspect]
     Indication: PERIODONTITIS
     Dosage: 600 MG /D PO
     Route: 048
     Dates: start: 20081225, end: 20081228
  13. ERYTHROMYCIN [Suspect]
     Indication: TOOTH EXTRACTION
     Dosage: 2000 MG /D PO
     Route: 048
     Dates: start: 20081230, end: 20090102
  14. ERYTHROMYCIN [Suspect]
     Indication: TOOTH EXTRACTION
     Dosage: 2000 MG /D PO
     Route: 048
     Dates: start: 20090106, end: 20090109
  15. CHLORPHENIRAMINE MALEATE [Suspect]
     Dosage: 16 MG /D PO
     Route: 048
     Dates: start: 20070326, end: 20070423
  16. CHLORPHENIRAMINE MALEATE [Suspect]
     Dosage: 16 MG /D PO
     Route: 048
     Dates: start: 20090106, end: 20090113
  17. FEXOFENADINE [Suspect]
     Indication: ECZEMA ASTEATOTIC
     Dosage: 120 MG /D PO
     Route: 048
     Dates: start: 20081129, end: 20081206
  18. CEPHALEXIN [Suspect]
     Indication: FURUNCLE
     Dosage: 2000 MG /D PO
     Route: 048
     Dates: start: 20070922, end: 20070926

REACTIONS (18)
  - ACUTE MYELOID LEUKAEMIA [None]
  - ACUTE RESPIRATORY FAILURE [None]
  - ACUTE SINUSITIS [None]
  - ANAEMIA [None]
  - APLASTIC ANAEMIA [None]
  - BLOOD PRESSURE INCREASED [None]
  - DERMATITIS ALLERGIC [None]
  - DIZZINESS [None]
  - LYMPH NODE CALCIFICATION [None]
  - MYELODYSPLASTIC SYNDROME [None]
  - PANCYTOPENIA [None]
  - PERIODONTITIS [None]
  - PLEURAL EFFUSION [None]
  - PNEUMONIA [None]
  - REFUSAL OF TREATMENT BY PATIENT [None]
  - RESORPTION BONE INCREASED [None]
  - RHINITIS ALLERGIC [None]
  - VITAMIN B12 DECREASED [None]
